FAERS Safety Report 7715163-X (Version None)
Quarter: 2011Q3

REPORT INFORMATION
  Report Type: 
  Country: None (occurrence: None)
  Receive Date: 20110822
  Receipt Date: 20110815
  Transmission Date: 20111222
  Serious: Yes (Death, Other)
  Sender: FDA-Public Use
  Company Number: CL-335-2011

PATIENT
  Age: 77 Year
  Sex: Female

DRUGS (3)
  1. VENLAFAXINE HYDROCHLORIDE [Concomitant]
  2. AMLODIPINE [Suspect]
     Indication: HYPERTENSION
  3. FLUCONAZOLE [Suspect]

REACTIONS (7)
  - DRUG LEVEL INCREASED [None]
  - INHIBITORY DRUG INTERACTION [None]
  - TOXICITY TO VARIOUS AGENTS [None]
  - DIZZINESS [None]
  - HYPOTENSION [None]
  - ASPHYXIA [None]
  - ASTHENIA [None]
